FAERS Safety Report 26195846 (Version 1)
Quarter: 2025Q4

REPORT INFORMATION
  Report Type: Spontaneous
  Country: JP (occurrence: JP)
  Receive Date: 20251224
  Receipt Date: 20251224
  Transmission Date: 20260117
  Serious: Yes (Hospitalization)
  Sender: MERCK SHARP & DOHME LLC
  Company Number: JP-009507513-2363906

PATIENT
  Age: 56 Year
  Sex: Male

DRUGS (3)
  1. KEYTRUDA [Suspect]
     Active Substance: PEMBROLIZUMAB
     Indication: Gastric cancer stage IV
     Dosage: 2 COURSES
     Route: 041
     Dates: start: 202506, end: 202507
  2. HERCEPTIN [Suspect]
     Active Substance: TRASTUZUMAB
     Indication: HER2 positive gastric cancer
     Dosage: LAST ADMIN DATE: IN 2025
     Route: 041
     Dates: start: 202505
  3. CAPECITABINE [Suspect]
     Active Substance: CAPECITABINE
     Indication: HER2 positive gastric cancer
     Dosage: LAST ADMIN DATE: IN 2025
     Route: 048
     Dates: start: 202505

REACTIONS (4)
  - Type 1 diabetes mellitus [Recovered/Resolved]
  - Pancreatic disorder [Recovered/Resolved]
  - Renal impairment [Recovered/Resolved]
  - Immune-mediated hypothyroidism [Recovered/Resolved]

NARRATIVE: CASE EVENT DATE: 20250101
